FAERS Safety Report 20704184 (Version 1)
Quarter: 2022Q2

REPORT INFORMATION
  Report Type: Spontaneous
  Country: RU (occurrence: None)
  Receive Date: 20220413
  Receipt Date: 20220413
  Transmission Date: 20220721
  Serious: Yes (Other)
  Sender: FDA-Public Use
  Company Number: RU-ROCHE-3073741

PATIENT
  Age: 51 Year
  Sex: Female

DRUGS (4)
  1. ATEZOLIZUMAB [Suspect]
     Active Substance: ATEZOLIZUMAB
     Indication: Malignant melanoma
     Dosage: ON /APR/2022, SHE RECEIVED MOST RECENT DOSE OF ATEZOLIZUMAB 1200 MG.
     Route: 041
     Dates: start: 202112
  2. VEMURAFENIB [Suspect]
     Active Substance: VEMURAFENIB
     Indication: Malignant melanoma
     Dosage: ON /APR/2022, SHE RECEIVED MOST RECENT DOSE OF VEMURAFENIB 720 MG (TOTAL DOSE 1440 MG).
     Route: 065
     Dates: start: 202112
  3. COBIMETINIB [Suspect]
     Active Substance: COBIMETINIB
     Indication: Malignant melanoma
     Dosage: 3 TABLET EACH?ON /APR/2022, SHE RECEIVED MOST RECENT DOSE OF COBIMETINIB 60 MG.
     Route: 065
     Dates: start: 202112
  4. NIVOLUMAB [Concomitant]
     Active Substance: NIVOLUMAB
     Route: 042
     Dates: start: 20201229, end: 202110

REACTIONS (2)
  - Skin toxicity [Recovering/Resolving]
  - Arthralgia [Recovering/Resolving]

NARRATIVE: CASE EVENT DATE: 20211201
